FAERS Safety Report 15891116 (Version 1)
Quarter: 2019Q1

REPORT INFORMATION
  Report Type: Spontaneous
  Country: FR (occurrence: FR)
  Receive Date: 20190130
  Receipt Date: 20190130
  Transmission Date: 20190417
  Serious: Yes (Other)
  Sender: FDA-Public Use
  Company Number: FR-MYLANLABS-2019M1007894

PATIENT
  Age: 72 Year
  Sex: Female

DRUGS (5)
  1. LOXAPAC                            /00401802/ [Concomitant]
     Active Substance: LOXAPINE SUCCINATE
     Dosage: UNK
  2. NALBUPHINE [Suspect]
     Active Substance: NALBUPHINE
     Indication: PRODUCT USED FOR UNKNOWN INDICATION
     Dosage: 10 MILLIGRAM, TOTAL
     Route: 041
     Dates: start: 20180619, end: 20180619
  3. VALIUM [Concomitant]
     Active Substance: DIAZEPAM
     Dosage: UNK
  4. THERALENE [Concomitant]
     Active Substance: TRIMEPRAZINE
     Dosage: UNK
  5. DEPAKINE CHRONO [Concomitant]
     Active Substance: VALPROATE SODIUM
     Dosage: UNK

REACTIONS (2)
  - Wrong product administered [Unknown]
  - Altered state of consciousness [Recovered/Resolved]
